FAERS Safety Report 18281794 (Version 1)
Quarter: 2020Q3

REPORT INFORMATION
  Report Type: Spontaneous
  Country: US (occurrence: US)
  Receive Date: 20200908
  Receipt Date: 20200908
  Transmission Date: 20201103
  Serious: No
  Sender: FDA-Public Use
  Company Number: None

PATIENT
  Age: 3 Decade
  Sex: Female

DRUGS (6)
  1. OSELTAMIVIR [Suspect]
     Active Substance: OSELTAMIVIR
     Indication: COVID-19
     Dates: start: 2020, end: 2020
  2. CEFTAZIDIME. [Suspect]
     Active Substance: CEFTAZIDIME
     Indication: COVID-19
     Dates: start: 2020, end: 2020
  3. AMANTADINE. [Suspect]
     Active Substance: AMANTADINE HYDROCHLORIDE
     Indication: COVID-19
     Dates: start: 2020, end: 2020
  4. AZITHROMYCIN ANHYDROUS. [Suspect]
     Active Substance: AZITHROMYCIN ANHYDROUS
     Indication: COVID-19
     Dates: start: 2020, end: 2020
  5. LOPINAVIR?RITONAVIR [Suspect]
     Active Substance: LOPINAVIR\RITONAVIR
     Indication: COVID-19
     Dates: start: 2020, end: 2020
  6. LINEZOLID. [Suspect]
     Active Substance: LINEZOLID
     Dates: start: 2020, end: 2020

REACTIONS (13)
  - Dyspnoea [None]
  - Bradycardia [None]
  - COVID-19 [None]
  - Stillbirth [None]
  - Maternal drugs affecting foetus [None]
  - Cough [None]
  - Oropharyngeal pain [None]
  - Hypotension [None]
  - Pancytopenia [None]
  - Off label use [None]
  - Rhinorrhoea [None]
  - Pneumonia viral [None]
  - Acute respiratory distress syndrome [None]
